FAERS Safety Report 8736833 (Version 2)
Quarter: 2013Q2

REPORT INFORMATION
  Report Type: Report from Study
  Country: DE (occurrence: DE)
  Receive Date: 20120822
  Receipt Date: 20130503
  Transmission Date: 20140414
  Serious: Yes (Other)
  Sender: FDA-Public Use
  Company Number: DE-TEVA-354754GER

PATIENT
  Age: 42 Year
  Sex: Female
  Weight: 95 kg

DRUGS (6)
  1. DOXORUBICIN LIPOSOMAL [Suspect]
     Indication: BREAST CANCER
     Route: 042
     Dates: start: 20120604, end: 20120723
  2. CARBOPLATIN [Suspect]
     Indication: BREAST CANCER
     Route: 042
     Dates: start: 20120604, end: 20120702
  3. PACLITAXEL [Suspect]
     Indication: BREAST CANCER
     Route: 042
     Dates: start: 20120604, end: 20120723
  4. TRASTUZUMAB [Suspect]
     Indication: BREAST CANCER
     Route: 042
     Dates: start: 20120604, end: 20120702
  5. LAPATINIB [Suspect]
     Indication: BREAST CANCER
     Route: 048
     Dates: start: 20120604, end: 20120621
  6. FRAXIPARINA [Concomitant]

REACTIONS (2)
  - Liver disorder [Recovered/Resolved]
  - Alanine aminotransferase increased [Recovered/Resolved]
